FAERS Safety Report 17093002 (Version 1)
Quarter: 2019Q4

REPORT INFORMATION
  Report Type: Spontaneous
  Country: GB (occurrence: GB)
  Receive Date: 20191129
  Receipt Date: 20191129
  Transmission Date: 20200122
  Serious: Yes (Hospitalization)
  Sender: FDA-Public Use
  Company Number: GB-TEVA-2019-GB-1142371

PATIENT
  Age: 72 Year
  Sex: Female

DRUGS (14)
  1. RANITIDINE. [Concomitant]
     Active Substance: RANITIDINE
     Dosage: 300 MG
  2. RAMIPRIL. [Concomitant]
     Active Substance: RAMIPRIL
     Dosage: 2.5 MG
  3. CASSIA [Concomitant]
     Dosage: 15 MILLIGRAM DAILY; 15 MG NIGHT.
  4. GLYCERYL TRINITRATE [Concomitant]
     Active Substance: NITROGLYCERIN
     Dosage: SPRAY ONE OR TWO DOSES THEN CLOSE MOUTH AS DIRECTED.
     Route: 060
  5. HYOSCINE BUTYLBROMIDE [Concomitant]
     Active Substance: BUTYLSCOPOLAMINE BROMIDE
     Dosage: 40 MILLIGRAM DAILY; FOUR TIMES A DAY
  6. SPIRONOLACTONE. [Concomitant]
     Active Substance: SPIRONOLACTONE
     Dosage: 12.5 MG
  7. NEBIVOLOL. [Concomitant]
     Active Substance: NEBIVOLOL
     Dosage: 10 MILLIGRAM DAILY; MORNING.
  8. OMEPRAZOLE. [Concomitant]
     Active Substance: OMEPRAZOLE
     Dosage: 80 MG
  9. ACIDEX [Concomitant]
     Active Substance: CALCIUM CARBONATE\SODIUM ALGINATE\SODIUM BICARBONATE
     Dosage: 40 ML
  10. MORPHINE [Concomitant]
     Active Substance: MORPHINE
     Dosage: 5 MILLIGRAM DAILY; 2.5 MG TWICE DAILY
     Route: 048
  11. WARFARIN [Suspect]
     Active Substance: WARFARIN
     Dosage: 1MG AND 3MG TABLETS. ADJUST DOSE ACCORDING TO INSTRUCTIONS.
  12. BUMETANIDE. [Concomitant]
     Active Substance: BUMETANIDE
     Dosage: 4 MILLIGRAM DAILY; MORNING AND LUNCHTIME.
  13. DOCUSATE [Concomitant]
     Active Substance: DOCUSATE
     Dosage: 400 MG
  14. ONDANSETRON [Concomitant]
     Active Substance: ONDANSETRON
     Dosage: 4 MG EVERY 8 HOURS

REACTIONS (3)
  - Skin atrophy [Unknown]
  - Alopecia [Unknown]
  - Pruritus [Unknown]
